FAERS Safety Report 10705090 (Version 1)
Quarter: 2015Q1

REPORT INFORMATION
  Report Type: Spontaneous
  Country: IL (occurrence: IL)
  Receive Date: 20150112
  Receipt Date: 20150112
  Transmission Date: 20150721
  Serious: Yes (Hospitalization, Other)
  Sender: FDA-Public Use
  Company Number: IL-PFIZER INC-2015004169

PATIENT
  Age: 60 Year
  Sex: Male

DRUGS (11)
  1. LYRICA [Suspect]
     Active Substance: PREGABALIN
     Indication: NEURALGIA
     Dosage: 25 MG, 2X/DAY
     Dates: start: 2014
  2. MONOCORD [Concomitant]
     Dosage: UNK
  3. GALVUS [Concomitant]
     Active Substance: VILDAGLIPTIN
  4. ALDACTONE [Concomitant]
     Active Substance: SPIRONOLACTONE
  5. ATORVASTATIN CALCIUM. [Concomitant]
     Active Substance: ATORVASTATIN CALCIUM
  6. BISOPROLOL HEMIFUMARATE/HYDROCHLOROTHIAZIDE [Concomitant]
  7. LYRICA [Suspect]
     Active Substance: PREGABALIN
     Dosage: 75 MG, 3X/DAY
  8. ALLORIL [Concomitant]
  9. AMIODARONE [Concomitant]
     Active Substance: AMIODARONE
  10. FUSID [Concomitant]
     Active Substance: FUROSEMIDE
  11. LANTUS [Concomitant]
     Active Substance: INSULIN GLARGINE

REACTIONS (5)
  - Intentional product use issue [Recovered/Resolved]
  - Blood creatinine increased [Recovering/Resolving]
  - Fall [Recovered/Resolved]
  - Confusional state [Recovering/Resolving]
  - Depressed level of consciousness [Recovering/Resolving]
